FAERS Safety Report 18000952 (Version 1)
Quarter: 2020Q3

REPORT INFORMATION
  Report Type: Spontaneous
  Country: US (occurrence: US)
  Receive Date: 20200709
  Receipt Date: 20200709
  Transmission Date: 20201103
  Serious: Yes (Other)
  Sender: FDA-Public Use
  Company Number: US-HIKMA PHARMACEUTICALS USA INC.-US-H14001-20-03198

PATIENT
  Age: 63 Year
  Sex: Male

DRUGS (1)
  1. BUTORPHANOL [Suspect]
     Active Substance: BUTORPHANOL
     Indication: PRURITUS
     Route: 045
     Dates: start: 201711

REACTIONS (3)
  - Encephalopathy [Unknown]
  - Ascites [Unknown]
  - Cellulitis [Unknown]
